FAERS Safety Report 6589505-5 (Version None)
Quarter: 2010Q1

REPORT INFORMATION
  Report Type: 
  Country: None (occurrence: None)
  Receive Date: 20100212
  Receipt Date: 20100126
  Transmission Date: 20100710
  Serious: Yes (Other)
  Sender: FDA-Public Use
  Company Number: 003659

PATIENT
  Age: 78 Year
  Sex: Male

DRUGS (6)
  1. PREDNISOLONE [Suspect]
     Indication: PEMPHIGOID
     Dosage: 50 MG, 20 MG, SUBSEQUENT DOSE DE-ESCALATION, 15 MG, 40 MG, 15 MG
     Dates: start: 20070219, end: 20070305
  2. PREDNISOLONE [Suspect]
     Indication: PEMPHIGOID
     Dosage: 50 MG, 20 MG, SUBSEQUENT DOSE DE-ESCALATION, 15 MG, 40 MG, 15 MG
     Dates: start: 20061001
  3. PREDNISOLONE [Suspect]
     Indication: PEMPHIGOID
     Dosage: 50 MG, 20 MG, SUBSEQUENT DOSE DE-ESCALATION, 15 MG, 40 MG, 15 MG
     Dates: start: 20070110
  4. PREDNISOLONE [Suspect]
     Indication: PEMPHIGOID
     Dosage: 50 MG, 20 MG, SUBSEQUENT DOSE DE-ESCALATION, 15 MG, 40 MG, 15 MG
     Dates: start: 20070130
  5. PREDNISOLONE [Suspect]
     Indication: PEMPHIGOID
     Dosage: 50 MG, 20 MG, SUBSEQUENT DOSE DE-ESCALATION, 15 MG, 40 MG, 15 MG
     Dates: start: 20070329
  6. CYCLOSPORINE [Suspect]
     Indication: PEMPHIGOID
     Dosage: 150 MG QD
     Dates: start: 20070110

REACTIONS (5)
  - BLOOD CREATININE INCREASED [None]
  - LIVER INJURY [None]
  - NOCARDIOSIS [None]
  - PNEUMOCYSTIS JIROVECI PNEUMONIA [None]
  - RENAL DISORDER [None]
